FAERS Safety Report 10145553 (Version 2)
Quarter: 2014Q2

REPORT INFORMATION
  Report Type: Spontaneous
  Country: DK (occurrence: DK)
  Receive Date: 20140501
  Receipt Date: 20140609
  Transmission Date: 20141212
  Serious: Yes (Life-Threatening, Hospitalization)
  Sender: FDA-Public Use
  Company Number: DK-JNJFOC-20140419807

PATIENT
  Age: 68 Year
  Sex: Female
  Weight: 67 kg

DRUGS (14)
  1. XARELTO [Suspect]
     Indication: THROMBOSIS PROPHYLAXIS
     Route: 048
     Dates: start: 20140217, end: 20140220
  2. PARACETAMOL [Concomitant]
     Indication: PAIN
     Route: 065
     Dates: start: 20140217
  3. GABAPENTIN [Concomitant]
     Indication: PRODUCT USED FOR UNKNOWN INDICATION
     Route: 048
     Dates: start: 20140219, end: 20140223
  4. MORFIN [Concomitant]
     Indication: PAIN
     Route: 065
     Dates: start: 20140217, end: 20140314
  5. PANTOPRAZOLE [Concomitant]
     Indication: RECTAL HAEMORRHAGE
     Route: 048
     Dates: start: 20140220
  6. PERILAX [BISACODYL] [Concomitant]
     Indication: CONSTIPATION
     Route: 065
     Dates: start: 20140221, end: 20140222
  7. TRANEXAMIC ACID [Concomitant]
     Indication: ANTICOAGULANT THERAPY
     Route: 065
     Dates: start: 20140217, end: 20140218
  8. CEFUROXIM [Concomitant]
     Indication: INFECTION PROPHYLAXIS
     Route: 065
     Dates: start: 20140217
  9. CONTALGIN [Concomitant]
     Indication: PAIN
     Route: 048
     Dates: start: 20140217, end: 20140314
  10. BONYL [Concomitant]
     Indication: PAIN
     Route: 065
     Dates: start: 20140219, end: 20140223
  11. ASASANTIN [Concomitant]
     Indication: CEREBROVASCULAR ACCIDENT
     Route: 048
     Dates: start: 20080807
  12. MOVICOL [Concomitant]
     Indication: CONSTIPATION
     Route: 048
     Dates: start: 20140221, end: 20140222
  13. SIMVASTATIN [Concomitant]
     Indication: HYPERCHOLESTEROLAEMIA
     Route: 048
  14. CEFUROXIM [Concomitant]
     Indication: INFECTION PROPHYLAXIS
     Route: 065

REACTIONS (13)
  - Dyspnoea [Unknown]
  - Oedema peripheral [Unknown]
  - Henoch-Schonlein purpura nephritis [Recovering/Resolving]
  - Diarrhoea [Unknown]
  - Oedema [Unknown]
  - Proteinuria [Unknown]
  - Weight increased [Unknown]
  - Hypertension [Unknown]
  - Nausea [Unknown]
  - Blood urine present [Unknown]
  - Rash [Unknown]
  - Rectal haemorrhage [Recovered/Resolved]
  - Rash [Unknown]
